FAERS Safety Report 5761452-8 (Version None)
Quarter: 2008Q2

REPORT INFORMATION
  Report Type: 
  Country: None (occurrence: None)
  Receive Date: 20080606
  Receipt Date: 20080526
  Transmission Date: 20081010
  Serious: Yes (Other)
  Sender: FDA-Public Use
  Company Number: US-ROCHE-568504

PATIENT

DRUGS (7)
  1. PYRIMETHAMINE/SULFADOXINE [Suspect]
     Dosage: FOR A TOTAL OF 2 DOSES AT LEAST 4 WEEKS APART.
     Route: 064
  2. PYRIMETHAMINE/SULFADOXINE [Suspect]
     Dosage: FOR A TOTAL OF 2 DOSES AT LEAST 4 WEEKS APART.
     Route: 064
  3. ARTESUNATE [Suspect]
     Dosage: FOR 3 DAYS.  FOR 2 DOSES AT LEAST 4 WEEKS APART.
     Route: 064
  4. 1 CONCOMITANT UNSPECIFIED DRUG [Suspect]
     Dosage: REPORTED AS TRADITIONAL MEDICINE TO INDUCE LABOUR
     Route: 064
  5. FERROUS SULFATE TAB [Concomitant]
  6. FOLIC ACID [Concomitant]
  7. NEVIRAPINE [Concomitant]
     Indication: PROPHYLAXIS AGAINST HIV INFECTION
     Dosage: INITIATED AT THE ONSET OF ACTIVE LABOUR

REACTIONS (1)
  - STILLBIRTH [None]
